FAERS Safety Report 14927245 (Version 2)
Quarter: 2018Q3

REPORT INFORMATION
  Report Type: Spontaneous
  Country: US (occurrence: US)
  Receive Date: 20180523
  Receipt Date: 20180731
  Transmission Date: 20181010
  Serious: Yes (Hospitalization)
  Sender: FDA-Public Use
  Company Number: US-PFIZER INC-2018202418

PATIENT
  Age: 29 Year
  Sex: Female

DRUGS (2)
  1. TORISEL [Suspect]
     Active Substance: TEMSIROLIMUS
     Dosage: UNK, WEEKLY (HAD BEEN ON IT TWICE)
     Dates: start: 2015
  2. TORISEL [Suspect]
     Active Substance: TEMSIROLIMUS
     Indication: GASTROINTESTINAL STROMAL TUMOUR
     Dosage: UNK, WEEKLY (HAD BEEN ON IT TWICE)
     Dates: start: 2009

REACTIONS (2)
  - Anaphylactic reaction [Recovered/Resolved]
  - Product use in unapproved indication [Unknown]
